FAERS Safety Report 9126123 (Version 1)
Quarter: 2013Q1

REPORT INFORMATION
  Report Type: Spontaneous
  Country: US (occurrence: US)
  Receive Date: 20130117
  Receipt Date: 20130117
  Transmission Date: 20140127
  Serious: Yes (Hospitalization)
  Sender: FDA-Public Use
  Company Number: US-GLAXOSMITHKLINE-A0815514A

PATIENT
  Age: 55 Year
  Sex: Male
  Weight: 108.6 kg

DRUGS (1)
  1. AVANDIA [Suspect]
     Indication: DIABETES MELLITUS
     Dosage: 4MG TWICE PER DAY
     Route: 048
     Dates: start: 1993, end: 2003

REACTIONS (2)
  - Palpitations [Not Recovered/Not Resolved]
  - Catheterisation cardiac [Unknown]
